FAERS Safety Report 25658661 (Version 1)
Quarter: 2025Q3

REPORT INFORMATION
  Report Type: Spontaneous
  Country: US (occurrence: US)
  Receive Date: 20250808
  Receipt Date: 20250808
  Transmission Date: 20251020
  Serious: Yes (Death, Disabling, Other)
  Sender: CHATTEM
  Company Number: US-OPELLA-2025OHG024004

PATIENT
  Sex: Male

DRUGS (1)
  1. GOLD BOND ORIGINAL STRENGTH [Suspect]
     Active Substance: MENTHOL
     Indication: Product used for unknown indication
     Route: 065
     Dates: start: 1948, end: 2018

REACTIONS (3)
  - Exposure to chemical pollution [Fatal]
  - Mesothelioma [Fatal]
  - Occupational exposure to toxic agent [Unknown]

NARRATIVE: CASE EVENT DATE: 19480101
